FAERS Safety Report 9063705 (Version 2)
Quarter: 2013Q1

REPORT INFORMATION
  Report Type: Report from Study
  Country: US (occurrence: US)
  Receive Date: 20130213
  Receipt Date: 20130306
  Transmission Date: 20140127
  Serious: No
  Sender: FDA-Public Use
  Company Number: US-VERTEX PHARMACEUTICALS INC.-2013-001636

PATIENT
  Age: 52 None
  Sex: Male
  Weight: 93 kg

DRUGS (5)
  1. VX-950 (TELAPREVIR) [Suspect]
     Indication: HEPATITIS C
     Dosage: 750 MG, TID
     Route: 048
     Dates: start: 20130202
  2. PEGASYS [Suspect]
     Indication: HEPATITIS C
     Dosage: UNK
     Dates: start: 20130202
  3. RIBAPAK [Suspect]
     Indication: HEPATITIS C
     Dosage: 800/DAY
     Dates: start: 20130202
  4. CLONAZEPAM [Concomitant]
     Dosage: 1 MG, UNK
  5. OXYCODONE [Concomitant]
     Dosage: 10 MG, UNK

REACTIONS (10)
  - Influenza like illness [Unknown]
  - Anxiety [Unknown]
  - Headache [Unknown]
  - Back pain [Unknown]
  - Weight increased [Unknown]
  - Injection site reaction [Unknown]
  - Injection site rash [Unknown]
  - Fatigue [Unknown]
  - Eye swelling [Unknown]
  - Rash [Unknown]
